FAERS Safety Report 9491924 (Version 2)
Quarter: 2013Q4

REPORT INFORMATION
  Report Type: Spontaneous
  Country: CN (occurrence: CN)
  Receive Date: 20130830
  Receipt Date: 20131023
  Transmission Date: 20140711
  Serious: Yes (Other)
  Sender: FDA-Public Use
  Company Number: CN-ROCHE-1268711

PATIENT
  Age: 31 Year
  Sex: Female

DRUGS (2)
  1. HERCEPTIN [Suspect]
     Indication: HER-2 POSITIVE BREAST CANCER
     Route: 065
  2. PACLITAXEL [Concomitant]
     Indication: HER-2 POSITIVE BREAST CANCER

REACTIONS (2)
  - Alanine aminotransferase increased [Unknown]
  - Ejection fraction decreased [Recovered/Resolved]
